FAERS Safety Report 13420516 (Version 2)
Quarter: 2017Q2

REPORT INFORMATION
  Report Type: Report from Study
  Country: FR (occurrence: FR)
  Receive Date: 20170407
  Receipt Date: 20170424
  Transmission Date: 20170830
  Serious: Yes (Hospitalization, Other)
  Sender: FDA-Public Use
  Company Number: FR-BRISTOL-MYERS SQUIBB COMPANY-BMS-2017-029063

PATIENT
  Age: 74 Year
  Sex: Male
  Weight: 116 kg

DRUGS (20)
  1. UVEDOSE [Concomitant]
     Active Substance: CHOLECALCIFEROL
     Indication: VITAMIN D DEFICIENCY
     Dosage: 100000 IU, QWK
     Route: 065
     Dates: start: 20140427
  2. LASILIX                            /00032601/ [Concomitant]
     Active Substance: FUROSEMIDE
     Indication: HYPERTENSION
     Dosage: 250 MG, BID
     Route: 065
     Dates: start: 201411
  3. BRILIQUE [Concomitant]
     Active Substance: TICAGRELOR
     Indication: PRODUCT USED FOR UNKNOWN INDICATION
     Dosage: 90 MG, TID
     Route: 065
     Dates: start: 201507
  4. NEORECORMON [Concomitant]
     Active Substance: ERYTHROPOIETIN
     Indication: ANAEMIA
     Dosage: 6000 IU, Q3WK
     Route: 065
     Dates: start: 2015
  5. NOVORAPID [Concomitant]
     Active Substance: INSULIN ASPART
     Indication: DIABETES MELLITUS
     Dosage: 5 IU, QD
     Route: 065
     Dates: start: 20150110
  6. ZYMAD [Concomitant]
     Active Substance: CHOLECALCIFEROL
     Indication: VITAMIN D DEFICIENCY
     Dosage: 80000 IU, QD
     Route: 065
     Dates: start: 2016
  7. VENOFER [Concomitant]
     Active Substance: IRON SUCROSE
     Indication: ANAEMIA
     Dosage: 100 MG, QWK
     Route: 065
     Dates: start: 2015
  8. DOLIPRANE [Concomitant]
     Active Substance: ACETAMINOPHEN
     Indication: ANALGESIC THERAPY
     Dosage: UNK
     Route: 065
     Dates: start: 2014
  9. IXPRIM [Concomitant]
     Active Substance: ACETAMINOPHEN\TRAMADOL HYDROCHLORIDE
     Indication: ANALGESIC THERAPY
     Dosage: 37.5 MG, QD
     Route: 065
     Dates: start: 201506
  10. TAHOR [Concomitant]
     Active Substance: ATORVASTATIN CALCIUM
     Indication: BLOOD CHOLESTEROL
     Dosage: 10 MG, QD
     Route: 065
     Dates: start: 20150110
  11. CACIT                              /00944201/ [Concomitant]
     Active Substance: CALCIUM CARBONATE\CHOLECALCIFEROL
     Indication: CALCIUM DEFICIENCY
     Dosage: 1000 MG, QD
     Route: 065
     Dates: start: 2015
  12. LANTUS [Concomitant]
     Active Substance: INSULIN GLARGINE
     Indication: DIABETES MELLITUS
     Dosage: 46 IU, UNK
     Route: 065
     Dates: start: 2012
  13. KARDEGIC [Concomitant]
     Active Substance: ASPIRIN LYSINE
     Indication: VENOUS THROMBOSIS
     Dosage: 75 MG, QD
     Route: 065
     Dates: start: 201506
  14. ENTECAVIR. [Suspect]
     Active Substance: ENTECAVIR
     Indication: HEPATITIS B VIRUS TEST
     Dosage: 0.5 MG, UNK
     Route: 065
     Dates: start: 20141001
  15. BISOCE [Concomitant]
     Active Substance: BISOPROLOL
     Indication: CARDIAC FAILURE
     Dosage: 1.25 MG, QD
     Route: 065
     Dates: start: 201411
  16. INEXIUM                            /01479302/ [Concomitant]
     Active Substance: ESOMEPRAZOLE MAGNESIUM
     Indication: GASTROOESOPHAGEAL REFLUX DISEASE
     Dosage: 20 MG, QD
     Route: 065
     Dates: start: 2015
  17. KAYEXALATE [Concomitant]
     Active Substance: SODIUM POLYSTYRENE SULFONATE
     Indication: HYPERKALAEMIA
     Dosage: UNK, BID
     Route: 065
     Dates: start: 2016
  18. HUMALOG [Concomitant]
     Active Substance: INSULIN LISPRO
     Indication: DIABETES MELLITUS
     Dosage: 3 IU, UNK
     Route: 065
     Dates: start: 2016
  19. STILNOX [Concomitant]
     Active Substance: ZOLPIDEM TARTRATE
     Indication: INSOMNIA
     Dosage: 10 MG, QD
     Route: 065
     Dates: start: 2012
  20. PHOSPHOSORB [Concomitant]
     Active Substance: CALCIUM ACETATE
     Indication: HYPERPHOSPHATAEMIA
     Dosage: 660 MG, QWK
     Route: 065
     Dates: start: 20150427

REACTIONS (19)
  - Joint arthroplasty [Unknown]
  - Hyperphosphataemia [Unknown]
  - Diabetes mellitus inadequate control [Recovering/Resolving]
  - Confusional state [Unknown]
  - Haemodialysis [Unknown]
  - Atrioventricular block [Unknown]
  - Varicose vein [Unknown]
  - Sepsis [Recovering/Resolving]
  - Ulcer [Recovering/Resolving]
  - Cardiac pacemaker insertion [Unknown]
  - Cognitive disorder [Unknown]
  - Platelet aggregation [Unknown]
  - Arthrodesis [Unknown]
  - Systemic inflammatory response syndrome [Unknown]
  - Venous thrombosis [Unknown]
  - Diabetic nephropathy [Recovering/Resolving]
  - Gastrooesophageal reflux disease [Unknown]
  - Fall [Unknown]
  - Hyperkalaemia [Unknown]

NARRATIVE: CASE EVENT DATE: 201411
